FAERS Safety Report 9986690 (Version 1)
Quarter: 2014Q1

REPORT INFORMATION
  Report Type: Report from Study
  Country: US (occurrence: US)
  Receive Date: 20140307
  Receipt Date: 20140307
  Transmission Date: 20141002
  Serious: No
  Sender: FDA-Public Use
  Company Number: US-ABBVIE-13P-163-1081304-00

PATIENT
  Age: 73 Year
  Sex: Female

DRUGS (2)
  1. HUMIRA [Suspect]
     Indication: RHEUMATOID ARTHRITIS
     Dates: start: 20130316
  2. VICODIN [Concomitant]
     Indication: PAIN
     Dosage: 5.5/7.5 MG EVERY 6 HOURS, AS NEEDED

REACTIONS (1)
  - Pain in extremity [Recovering/Resolving]
